FAERS Safety Report 7485066-7 (Version None)
Quarter: 2011Q2

REPORT INFORMATION
  Report Type: 
  Country: None (occurrence: None)
  Receive Date: 20110517
  Receipt Date: 20101115
  Transmission Date: 20111010
  Serious: Yes (Other)
  Sender: FDA-Public Use
  Company Number: US-BAYER-201014072NA

PATIENT
  Age: 23 Year
  Sex: Female
  Weight: 55 kg

DRUGS (49)
  1. COTRIM [Concomitant]
     Dates: start: 20060601
  2. ALPRAZOLAM [Concomitant]
     Dates: start: 20090601
  3. DOXYCYCLIN [Concomitant]
     Dates: start: 20100101
  4. DOXYCYCLIN [Concomitant]
     Dates: start: 20081001
  5. YAZ [Suspect]
     Indication: PRODUCT USED FOR UNKNOWN INDICATION
     Route: 048
     Dates: start: 20070101, end: 20090615
  6. DOXYCYCLIN [Concomitant]
     Indication: PRODUCT USED FOR UNKNOWN INDICATION
     Dates: start: 20060101
  7. PROMETHAZINE [Concomitant]
     Dates: start: 20061201
  8. METOCLOPRAMID [Concomitant]
     Dates: start: 20061201
  9. OXYCODONE HCL [Concomitant]
     Dates: start: 20060601
  10. LEVAQUIN [Concomitant]
     Dates: start: 20080201
  11. ACCUTANE [Concomitant]
  12. YASMIN [Suspect]
     Indication: PRODUCT USED FOR UNKNOWN INDICATION
     Route: 048
     Dates: start: 20040101, end: 20060615
  13. POTASSIUM [POTASSIUM] [Concomitant]
     Dates: start: 20070101
  14. BUPROPION [Concomitant]
     Dates: start: 20090301
  15. ALPRAZOLAM [Concomitant]
     Dates: start: 20090601
  16. OXYCODONE HCL [Concomitant]
     Dates: start: 20080201
  17. DOXYCYCLIN [Concomitant]
     Dates: start: 20081201
  18. DOXYCYCLIN [Concomitant]
     Dates: start: 20081201
  19. EXCEDRIN [ACETYLSALICYLIC ACID,CAFFEINE,SALICYLAMIDE] [Concomitant]
     Dosage: SPORADICALLY
  20. DOXYCYCLINE [Concomitant]
     Dates: start: 20061001
  21. TRETINOIN [Concomitant]
     Dates: start: 20060601
  22. SERTRALINE HYDROCHLORIDE [Concomitant]
     Dates: start: 20080101
  23. LOESTRIN 1.5/30 [Concomitant]
     Dates: start: 20081101
  24. BUPROPION [Concomitant]
     Dates: start: 20090301
  25. CLINDAMYCIN [Concomitant]
     Dates: start: 20090601
  26. ONDANSETRON [Concomitant]
     Dates: start: 20080201
  27. BUPROPION [Concomitant]
     Dates: start: 20090301
  28. KINEVAC [Concomitant]
     Dosage: HEPATOBILIARY SCAN
     Dates: start: 20091007, end: 20091007
  29. LOESTRIN 1.5/30 [Concomitant]
     Dates: start: 20080901
  30. OXYCODONE HCL AND ACETAMINOPHEN [Concomitant]
     Dates: start: 20090601
  31. ADDERALL 10 [Concomitant]
  32. POTASSIUM [Concomitant]
     Dates: start: 20070101
  33. ALPRAZOLAM [Concomitant]
     Dates: start: 20090601
  34. BIAXIN [Concomitant]
     Indication: PRODUCT USED FOR UNKNOWN INDICATION
     Dates: start: 20080101
  35. BACTRIM DS [Concomitant]
     Dates: start: 20090101
  36. ZOFRAN [Concomitant]
     Dates: start: 20061201
  37. METHYLPREDNISOLONE ACETATE [Concomitant]
     Dates: start: 20090601
  38. DOXYCYCLIN [Concomitant]
     Dates: start: 20090101
  39. DOXYCYCLIN [Concomitant]
     Dates: start: 20100101
  40. TRAMADOL HYDROCHLORIDE [Concomitant]
     Dates: start: 20060801
  41. CLINDAMYCIN [Concomitant]
     Dates: start: 20090601
  42. IBUPROFEN [Concomitant]
     Dates: start: 20061201
  43. DRYSOL [Concomitant]
     Dates: start: 20080401
  44. CLINDAMYCIN [Concomitant]
     Dates: start: 20081001
  45. CLINDAMYCIN [Concomitant]
     Dates: start: 20090601
  46. DOXYCYCLIN [Concomitant]
     Dates: start: 20090101
  47. LAMICTAL [Concomitant]
  48. EXCEDRIN (MIGRAINE) [Concomitant]
     Dosage: SPORADICALLY
  49. LOESTRIN 1.5/30 [Concomitant]
     Dates: start: 20081101

REACTIONS (3)
  - NAUSEA [None]
  - ABDOMINAL DISCOMFORT [None]
  - GALLBLADDER DISORDER [None]
